FAERS Safety Report 5547490-9 (Version None)
Quarter: 2007Q4

REPORT INFORMATION
  Report Type: 
  Country: None (occurrence: None)
  Receive Date: 20071126
  Receipt Date: 20070417
  Transmission Date: 20080405
  Serious: Yes (Other)
  Sender: FDA-Public Use
  Company Number: 2007BH003322

PATIENT
  Age: 53 Year
  Sex: Female

DRUGS (12)
  1. DIANEAL [Suspect]
     Indication: RENAL FAILURE CHRONIC
     Dosage: 6 L; IP
     Route: 033
  2. DIANEAL [Suspect]
     Indication: RENAL FAILURE CHRONIC
     Dosage: 2 L; IP
     Route: 033
  3. ADVAIR DISKUS 100/50 [Concomitant]
  4. AVANDIA [Concomitant]
  5. CLONIDINE HYDROCHLORIDE [Concomitant]
  6. DIOVAN [Concomitant]
  7. EPOGEN [Concomitant]
  8. PROCARDIA XL [Concomitant]
  9. FERRLECIT /USA/ [Concomitant]
  10. RECOMBIVAX HB [Concomitant]
  11. RENAGEL [Concomitant]
  12. SINGULAIR [Concomitant]

REACTIONS (3)
  - ABDOMINAL PAIN [None]
  - MUSCULOSKELETAL PAIN [None]
  - PERITONEAL CLOUDY EFFLUENT [None]
